FAERS Safety Report 8129481-7 (Version None)
Quarter: 2012Q1

REPORT INFORMATION
  Report Type: 
  Country: None (occurrence: None)
  Receive Date: 20120210
  Receipt Date: 20120203
  Transmission Date: 20120608
  Serious: Yes (Other)
  Sender: FDA-Public Use
  Company Number: US-MYLANLABS-2012S1002769

PATIENT
  Sex: Male

DRUGS (2)
  1. AMITRIPTYLINE HCL [Suspect]
  2. AMITRIPTYLINE HCL [Suspect]
     Indication: DEPRESSION

REACTIONS (2)
  - POLLAKIURIA [None]
  - DRUG DEPENDENCE [None]
